FAERS Safety Report 8849751 (Version 2)
Quarter: 2013Q2

REPORT INFORMATION
  Report Type: Spontaneous
  Country: US (occurrence: None)
  Receive Date: 20120426
  Receipt Date: 20120703
  Transmission Date: 20140414
  Serious: Yes (Other)
  Sender: FDA-Public Use
  Company Number: PHEH2011US011852

PATIENT
  Age: 63 Year
  Sex: Male

DRUGS (21)
  1. GILENYA [Suspect]
     Indication: MULTIPLE SCLEROSIS
     Route: 048
     Dates: start: 20110822, end: 20111214
  2. BACLOFEN [Suspect]
  3. ADDERALL (AMFETAMINE ASPARTATE, AMFETAMINE SULFATE, DEXAMFETAMINE SACCHARATE, DEXAMFETAMINE SULFATE) [Concomitant]
  4. ASPIRINE (ACETYLSALICYLIC ACID) [Concomitant]
  5. CITALOPRAM (CITALOPRAM) [Concomitant]
  6. TRAZOLAN (TRAZODONE HYDROCHLORIDE) [Concomitant]
  7. CRESTOR (ROSUVASTATIN CALCIUM) [Concomitant]
  8. FISH OIL (FISH OIL) [Concomitant]
  9. HYDROXYZINE (HYDROXYZINE) [Concomitant]
  10. LYRICA (PREGABALIN) [Concomitant]
  11. DURAGESIC (FENTANYL) [Concomitant]
  12. MULTIVITAMINS (ASCORBIC ACID, ERGOCALCIFEROL, FOLIC ACID, NICOTINAMIDE, PANTHENOL, RETINOL, RIBOFLAVIN, THIAMINE HYDROCHLORIDE) [Concomitant]
  13. ASMANEX [Concomitant]
  14. POLYETHYLENE GLYCOL (MACROGOL) [Concomitant]
  15. RANITIDINE (RANITIDINE) [Concomitant]
  16. TRICOR (FENOFIBRATE) [Concomitant]
  17. URECHOLINE (BETHANECHOL CHLORIDE) [Concomitant]
  18. COMBIVENT /GFRI (IPRATROPIUM BROMIDE, SALBUTAMOL SULFATE) [Concomitant]
  19. HYDROCODONE (HYDROCODONE) [Concomitant]
  20. LYSINE (LYSINE) [Concomitant]
  21. DIAZEPAM (DIAZEPAM) [Concomitant]

REACTIONS (7)
  - Macular oedema [None]
  - Dizziness [None]
  - Asthenia [None]
  - Fatigue [None]
  - Feeling abnormal [None]
  - Mobility decreased [None]
  - Multiple sclerosis relapse [None]
